FAERS Safety Report 5946526-0 (Version None)
Quarter: 2008Q4

REPORT INFORMATION
  Report Type: 
  Country: None (occurrence: None)
  Receive Date: 20081110
  Receipt Date: 20081030
  Transmission Date: 20090506
  Serious: Yes (Other)
  Sender: FDA-Public Use
  Company Number: B0544334A

PATIENT
  Age: 72 Year
  Sex: Male

DRUGS (5)
  1. RANITIDINE [Suspect]
     Indication: DRUG USE FOR UNKNOWN INDICATION
     Dosage: 150MG SINGLE DOSE
     Route: 040
     Dates: start: 20080901, end: 20080901
  2. ATROPINE SULFATE [Suspect]
     Indication: DRUG USE FOR UNKNOWN INDICATION
     Dosage: .5MG SINGLE DOSE
     Route: 040
     Dates: start: 20080901, end: 20080901
  3. SERESTA [Suspect]
     Indication: DRUG USE FOR UNKNOWN INDICATION
     Dosage: 15MG SINGLE DOSE
     Route: 065
     Dates: start: 20080901, end: 20080901
  4. TRAMADOL HCL [Suspect]
     Indication: DRUG USE FOR UNKNOWN INDICATION
     Dosage: 50MG SINGLE DOSE
     Route: 040
     Dates: start: 20080901, end: 20080901
  5. DAFALGAN [Suspect]
     Indication: DRUG USE FOR UNKNOWN INDICATION
     Dosage: 1G SINGLE DOSE
     Route: 040
     Dates: start: 20080901, end: 20080901

REACTIONS (4)
  - BRADYCARDIA [None]
  - INCORRECT ROUTE OF DRUG ADMINISTRATION [None]
  - LOSS OF CONSCIOUSNESS [None]
  - RESPIRATORY DEPRESSION [None]
